FAERS Safety Report 4280331-9 (Version None)
Quarter: 2004Q1

REPORT INFORMATION
  Report Type: 
  Country: None (occurrence: None)
  Receive Date: 20040127
  Receipt Date: 20040122
  Transmission Date: 20041129
  Serious: Yes (Disabling)
  Sender: FDA-Public Use
  Company Number: 7255

PATIENT
  Age: 50 Year
  Sex: Male

DRUGS (2)
  1. AMIKACIN [Suspect]
     Indication: LYMPHANGITIS
     Dosage: 500 MG BIDI IV
     Route: 042
  2. AMOXICILLIN AND CLAVULANATE POTASSIUM [Concomitant]

REACTIONS (1)
  - ANOSMIA [None]
